FAERS Safety Report 4384791-4 (Version None)
Quarter: 2004Q2

REPORT INFORMATION
  Report Type: 
  Country: None (occurrence: None)
  Receive Date: 20040625
  Receipt Date: 20040618
  Transmission Date: 20050107
  Serious: Yes (Hospitalization)
  Sender: FDA-Public Use
  Company Number: 200412393FR

PATIENT
  Age: 69 Year
  Sex: Male

DRUGS (4)
  1. AMAREL [Suspect]
     Indication: DIABETES MELLITUS NON-INSULIN-DEPENDENT
     Route: 048
  2. ESKAZOLE [Suspect]
     Indication: CYST REMOVAL
     Route: 048
  3. ESKAZOLE [Suspect]
     Indication: ECHINOCOCCIASIS
     Route: 048
  4. AMLOR [Suspect]
     Indication: ESSENTIAL HYPERTENSION
     Route: 048

REACTIONS (18)
  - AORTIC ANEURYSM [None]
  - BLOOD FIBRINOGEN INCREASED [None]
  - CARCINOEMBRYONIC ANTIGEN INCREASED [None]
  - CARDIAC MURMUR [None]
  - CHOLESTASIS [None]
  - CYTOLYTIC HEPATITIS [None]
  - ERYTHROSIS [None]
  - FATIGUE [None]
  - HEPATIC CIRRHOSIS [None]
  - HEPATOMEGALY [None]
  - NAIL DISCOLOURATION [None]
  - NEPHROANGIOSCLEROSIS [None]
  - PORTAL HYPERTENSION [None]
  - PROTEIN URINE PRESENT [None]
  - SPLENOMEGALY [None]
  - THROMBOCYTOPENIA [None]
  - VARICES OESOPHAGEAL [None]
  - WEIGHT DECREASED [None]
